FAERS Safety Report 9398387 (Version 1)
Quarter: 2013Q3

REPORT INFORMATION
  Report Type: Spontaneous
  Country: US (occurrence: US)
  Receive Date: 20130712
  Receipt Date: 20130712
  Transmission Date: 20140515
  Serious: No
  Sender: FDA-Public Use
  Company Number: US-GLAXOSMITHKLINE-A1013804A

PATIENT
  Age: 55 Year
  Sex: Male

DRUGS (2)
  1. FLOVENT [Suspect]
     Indication: ASTHMA
     Dosage: 1PUFF TWICE PER DAY
     Route: 055
     Dates: start: 2008
  2. BLOOD PRESSURE MEDICATION [Concomitant]

REACTIONS (4)
  - Migraine [Unknown]
  - Dizziness [Unknown]
  - Eye pain [Unknown]
  - Lacrimation increased [Unknown]
